FAERS Safety Report 7658406-3 (Version None)
Quarter: 2011Q3

REPORT INFORMATION
  Report Type: 
  Country: None (occurrence: None)
  Receive Date: 20110802
  Receipt Date: 20110721
  Transmission Date: 20111222
  Serious: Yes (Hospitalization)
  Sender: FDA-Public Use
  Company Number: TPA2011A04440

PATIENT
  Age: 44 Year
  Sex: Male

DRUGS (4)
  1. ROCEPHIN [Suspect]
     Dosage: 1 GM (1 GM,L IN 1 D)  SUBCUTANEOUS
     Route: 058
     Dates: start: 20110316, end: 20110318
  2. GENTAMICIN [Suspect]
     Indication: PRODUCT USED FOR UNKNOWN INDICATION
     Dosage: 60 MG (60 MG,L IN 1 D)  PARENTERAL
     Route: 051
     Dates: start: 20110316, end: 20110318
  3. PROPYLTHIOURACI LE (PROPYLTHIOURACIL) [Suspect]
     Indication: HYPERTHYROIDISM
     Dosage: (50 MG TABLETS, 150 MG THREE TIMES A DAY)  ORAL
     Route: 048
     Dates: start: 20110219, end: 20110318
  4. ADENURIC (FEBUXOSTAT) [Suspect]
     Indication: PRODUCT USED FOR UNKNOWN INDICATION
     Dosage: ORAL
     Route: 048
     Dates: end: 20110321

REACTIONS (3)
  - STEVENS-JOHNSON SYNDROME [None]
  - EOSINOPHILIA [None]
  - PANCREATITIS ACUTE [None]
